FAERS Safety Report 4464909-5 (Version None)
Quarter: 2004Q4

REPORT INFORMATION
  Report Type: 
  Country: None (occurrence: None)
  Receive Date: 20041004
  Receipt Date: 20040210
  Transmission Date: 20050328
  Serious: No
  Sender: FDA-Public Use
  Company Number: 361817

PATIENT
  Age: 67 Year
  Sex: Male

DRUGS (4)
  1. COREG [Suspect]
     Indication: ATRIAL FIBRILLATION
     Dosage: 6.25MG TWICE PER DAY
     Route: 048
     Dates: start: 20031001
  2. CELEXA [Concomitant]
  3. ATIVAN [Concomitant]
  4. ACCUPRIL [Concomitant]

REACTIONS (4)
  - CHROMATOPSIA [None]
  - DEPRESSION [None]
  - NEUROPATHY PERIPHERAL [None]
  - WEIGHT DECREASED [None]
